FAERS Safety Report 6023452-2 (Version None)
Quarter: 2008Q4

REPORT INFORMATION
  Report Type: 
  Country: None (occurrence: None)
  Receive Date: 20081223
  Receipt Date: 20081209
  Transmission Date: 20090506
  Serious: Yes (Other)
  Sender: FDA-Public Use
  Company Number: 1000003196

PATIENT
  Age: 63 Year
  Sex: Female

DRUGS (3)
  1. MONUROL [Suspect]
     Dosage: 2 GM, ONCE, ORAL
     Route: 048
     Dates: start: 20081029, end: 20081029
  2. FLUIDASA [Suspect]
     Indication: NASOPHARYNGITIS
     Dosage: (ONCE), ORAL
     Route: 048
     Dates: start: 20081029, end: 20081029
  3. VACUNA ANTIGRIPAL PASTEUR [Suspect]
     Indication: IMMUNISATION
     Dosage: 0.5 ML (0.5 ML, ONCE), INTRAMUSCULAR
     Route: 030
     Dates: start: 20081029, end: 20081029

REACTIONS (5)
  - LOSS OF CONSCIOUSNESS [None]
  - NAUSEA [None]
  - PRURITUS GENERALISED [None]
  - SWELLING [None]
  - URTICARIA [None]
